FAERS Safety Report 9069077 (Version 1)
Quarter: 2013Q1

REPORT INFORMATION
  Report Type: Spontaneous
  Country: US (occurrence: US)
  Receive Date: 20130114
  Receipt Date: 20130114
  Transmission Date: 20140127
  Serious: Yes (Hospitalization, Other)
  Sender: FDA-Public Use
  Company Number: US-RB-048483-13

PATIENT
  Sex: Male

DRUGS (1)
  1. SUBOXONE FILM [Suspect]
     Indication: PRODUCT USED FOR UNKNOWN INDICATION
     Dosage: SUBOXONE FILM 8/2 MG
     Route: 065

REACTIONS (4)
  - Hepatic function abnormal [Unknown]
  - Delirium [Unknown]
  - Hepatic enzyme increased [Unknown]
  - Ammonia increased [Unknown]
